FAERS Safety Report 20033529 (Version 1)
Quarter: 2021Q4

REPORT INFORMATION
  Report Type: Spontaneous
  Country: DE (occurrence: DE)
  Receive Date: 20211104
  Receipt Date: 20211104
  Transmission Date: 20220303
  Serious: Yes (Other)
  Sender: FDA-Public Use
  Company Number: DE-ABBVIE-21K-062-4146182-00

PATIENT
  Age: 66 Year
  Sex: Female

DRUGS (3)
  1. VENETOCLAX [Suspect]
     Active Substance: VENETOCLAX
     Indication: Acute myeloid leukaemia
     Dosage: 100-400 MG/DAY
     Route: 048
  2. TREOSULFAN [Suspect]
     Active Substance: TREOSULFAN
     Indication: Product used for unknown indication
     Dosage: 3X10
     Route: 065
  3. THYMOCYTE IMMUNE GLOBULIN NOS [Suspect]
     Active Substance: THYMOCYTE IMMUNE GLOBULIN NOS
     Indication: Product used for unknown indication
     Route: 065

REACTIONS (8)
  - Transplantation complication [Unknown]
  - Chronic myelomonocytic leukaemia [Unknown]
  - Off label use [Unknown]
  - Tumour lysis syndrome [Unknown]
  - Mastoiditis [Unknown]
  - Chronic graft versus host disease [Unknown]
  - Stem cell transplant [Unknown]
  - Acquired gene mutation [Unknown]
